FAERS Safety Report 21021125 (Version 1)
Quarter: 2022Q2

REPORT INFORMATION
  Report Type: Spontaneous
  Country: US (occurrence: US)
  Receive Date: 20220629
  Receipt Date: 20220629
  Transmission Date: 20220721
  Serious: Yes (Other)
  Sender: FDA-Public Use
  Company Number: US-SA-2022SA230115

PATIENT
  Age: 7 Year
  Sex: Female

DRUGS (4)
  1. ENOXAPARIN SODIUM [Suspect]
     Active Substance: ENOXAPARIN SODIUM
     Indication: Anticoagulant therapy
     Dosage: UNK
  2. ENOXAPARIN SODIUM [Suspect]
     Active Substance: ENOXAPARIN SODIUM
     Indication: Embolism
  3. ASPIRIN [Suspect]
     Active Substance: ASPIRIN
     Indication: Antiplatelet therapy
  4. ASPIRIN [Suspect]
     Active Substance: ASPIRIN
     Indication: Embolism

REACTIONS (7)
  - Haemorrhage [Recovered/Resolved]
  - Haematochezia [Recovered/Resolved]
  - Epistaxis [Recovered/Resolved]
  - Contusion [Recovered/Resolved]
  - Vaginal haemorrhage [Recovered/Resolved]
  - Haemarthrosis [Unknown]
  - Increased tendency to bruise [Unknown]
